FAERS Safety Report 16157447 (Version 1)
Quarter: 2019Q2

REPORT INFORMATION
  Report Type: Spontaneous
  Country: US (occurrence: US)
  Receive Date: 20190403
  Receipt Date: 20190403
  Transmission Date: 20190711
  Serious: Yes (Hospitalization)
  Sender: FDA-Public Use
  Company Number: None

PATIENT
  Age: 83 Year
  Sex: Female

DRUGS (9)
  1. FOLIC ACID. [Concomitant]
     Active Substance: FOLIC ACID
     Dates: start: 20190402
  2. XALATAN [Concomitant]
     Active Substance: LATANOPROST
     Dates: start: 20180410
  3. AVONEX [Suspect]
     Active Substance: INTERFERON BETA-1A
     Indication: MULTIPLE SCLEROSIS
     Dosage: ?          OTHER FREQUENCY:ONCE A WEEK;?
     Route: 030
  4. LATANOPROST. [Concomitant]
     Active Substance: LATANOPROST
     Dates: start: 20190402
  5. KEPPRA [Concomitant]
     Active Substance: LEVETIRACETAM
     Dates: start: 20190402
  6. VITAMIN D NOS [Concomitant]
     Active Substance: VITAMIN D NOS
     Dates: start: 20190402
  7. CALCIUM + D [Concomitant]
     Active Substance: CALCIUM\VITAMIN D
     Dates: start: 20190402
  8. FISH OIL [Concomitant]
     Active Substance: FISH OIL
     Dates: start: 20190402
  9. VITAMIN B12 [Concomitant]
     Active Substance: CYANOCOBALAMIN
     Dates: start: 20190402

REACTIONS (2)
  - Fatigue [None]
  - Pain [None]

NARRATIVE: CASE EVENT DATE: 20190122
